FAERS Safety Report 8821901 (Version 3)
Quarter: 2013Q1

REPORT INFORMATION
  Report Type: Spontaneous
  Country: US (occurrence: US)
  Receive Date: 20121003
  Receipt Date: 20130107
  Transmission Date: 20140127
  Serious: Yes (Hospitalization, Other)
  Sender: FDA-Public Use
  Company Number: US-AMGEN-USASP2012061375

PATIENT
  Age: 48 Year
  Sex: Male
  Weight: 97.51 kg

DRUGS (2)
  1. ENBREL [Suspect]
     Indication: PSORIASIS
     Dosage: 50 MG, QWK
     Route: 058
     Dates: start: 20110518, end: 201208
  2. HUMIRA [Concomitant]
     Indication: PSORIASIS
     Dosage: UNK

REACTIONS (10)
  - Skin lesion [Recovering/Resolving]
  - Oedema peripheral [Recovering/Resolving]
  - Organ failure [Recovering/Resolving]
  - Renal failure acute [Recovered/Resolved]
  - Immune system disorder [Recovering/Resolving]
  - Vibrio test positive [Recovered/Resolved]
  - Limb injury [Recovering/Resolving]
  - Necrotising fasciitis [Recovering/Resolving]
  - Sepsis [Recovering/Resolving]
  - Anaemia [Recovering/Resolving]
